FAERS Safety Report 6370577-8 (Version None)
Quarter: 2009Q3

REPORT INFORMATION
  Report Type: 
  Country: None (occurrence: None)
  Receive Date: 20090923
  Receipt Date: 20090917
  Transmission Date: 20100115
  Serious: Yes (Other)
  Sender: FDA-Public Use
  Company Number: B0591292A

PATIENT
  Sex: Female

DRUGS (5)
  1. EPIVIR [Suspect]
     Indication: HIV INFECTION
     Route: 048
     Dates: start: 20070530
  2. VIDEX [Suspect]
     Indication: HIV INFECTION
     Route: 048
     Dates: start: 20070530
  3. NORVIR [Suspect]
     Indication: HIV INFECTION
     Route: 048
     Dates: start: 20070530
  4. REYATAZ [Suspect]
     Indication: HIV INFECTION
     Route: 048
     Dates: start: 20070530
  5. RETROVIR [Concomitant]
     Indication: ANTIVIRAL PROPHYLAXIS
     Route: 042

REACTIONS (3)
  - ANAEMIA [None]
  - DRUG EXPOSURE DURING PREGNANCY [None]
  - LIVE BIRTH [None]
